FAERS Safety Report 7688888-2 (Version None)
Quarter: 2011Q3

REPORT INFORMATION
  Report Type: 
  Country: None (occurrence: None)
  Receive Date: 20110817
  Receipt Date: 20110805
  Transmission Date: 20111222
  Serious: Yes (Hospitalization, Other)
  Sender: FDA-Public Use
  Company Number: PHHY2011FR71210

PATIENT
  Sex: Male
  Weight: 65 kg

DRUGS (1)
  1. GLEEVEC [Suspect]
     Indication: HYPEREOSINOPHILIC SYNDROME
     Dosage: 100 MG, DAILY
     Route: 048
     Dates: start: 20100811, end: 20110531

REACTIONS (5)
  - CYTOLYTIC HEPATITIS [None]
  - BLOOD CREATINE PHOSPHOKINASE INCREASED [None]
  - LIVER INJURY [None]
  - GAMMA-GLUTAMYLTRANSFERASE INCREASED [None]
  - TRANSAMINASES INCREASED [None]
